FAERS Safety Report 8287716-4 (Version None)
Quarter: 2012Q2

REPORT INFORMATION
  Report Type: 
  Country: None (occurrence: None)
  Receive Date: 20120416
  Receipt Date: 20120413
  Transmission Date: 20120825
  Serious: Yes (Hospitalization, Other)
  Sender: FDA-Public Use
  Company Number: TR-PFIZER INC-2012093446

PATIENT
  Age: 48 Year
  Sex: Male

DRUGS (4)
  1. HYZAAR [Concomitant]
  2. VARENICLINE TARTRATE [Suspect]
     Indication: SMOKING CESSATION THERAPY
     Dosage: UNK
     Route: 048
     Dates: start: 20120201
  3. AZITHROMYCIN [Concomitant]
     Dosage: UNK
     Route: 048
     Dates: start: 20120131, end: 20120202
  4. LIPITOR [Concomitant]

REACTIONS (4)
  - AGITATION [None]
  - CONVULSION [None]
  - MOVEMENT DISORDER [None]
  - SOMNOLENCE [None]
